FAERS Safety Report 5179139-1 (Version None)
Quarter: 2006Q4

REPORT INFORMATION
  Report Type: 
  Country: None (occurrence: None)
  Receive Date: 20061204
  Receipt Date: 20061121
  Transmission Date: 20070319
  Serious: Yes (Hospitalization)
  Sender: FDA-Public Use
  Company Number: 200610765

PATIENT
  Age: 55 Year
  Sex: Male
  Weight: 95.2554 kg

DRUGS (4)
  1. PANGLOBULIN [Suspect]
     Indication: POLYNEUROPATHY
     Dosage: 48 G QD IV
     Route: 042
     Dates: start: 20061005, end: 20061008
  2. ATENOLOL [Concomitant]
  3. ALTACE [Concomitant]
  4. CYMBALTA [Concomitant]

REACTIONS (7)
  - DIALYSIS [None]
  - INFUSION RELATED REACTION [None]
  - LUNG INFILTRATION [None]
  - OEDEMA PERIPHERAL [None]
  - PNEUMONIA [None]
  - PO2 DECREASED [None]
  - RENAL FAILURE ACUTE [None]
